FAERS Safety Report 5581316-2 (Version None)
Quarter: 2008Q1

REPORT INFORMATION
  Report Type: 
  Country: None (occurrence: None)
  Receive Date: 20080104
  Receipt Date: 20071227
  Transmission Date: 20080703
  Serious: Yes (Hospitalization, Other)
  Sender: FDA-Public Use
  Company Number: PHBS2007BR21622

PATIENT
  Age: 92 Year
  Sex: Female
  Weight: 60 kg

DRUGS (18)
  1. ROCALTROL [Concomitant]
     Dosage: UNK, BID
     Route: 048
     Dates: start: 19990101
  2. CALTRATE [Concomitant]
     Dosage: UNK, QD
     Route: 048
  3. DAFLON (DIOSMIN) [Concomitant]
     Dosage: 500 MG, BID
     Route: 048
  4. ASCORBIC ACID [Concomitant]
     Dosage: 500 MG, QD
     Route: 048
  5. CLORANA [Concomitant]
     Dosage: 25 MG, QD
     Route: 048
  6. AAS [Concomitant]
     Dosage: UNK, QD
     Route: 048
  7. SERTRALINE HYDROCHLORIDE [Concomitant]
     Dosage: 40 MG, QD
     Route: 048
  8. DIGOXIN [Concomitant]
     Dosage: 0.12 MG, QD
     Route: 048
     Dates: start: 20050101
  9. FORASEQ [Suspect]
     Indication: CHRONIC OBSTRUCTIVE PULMONARY DISEASE
     Dosage: 1-2 DF/Q12H
     Dates: start: 20051201
  10. BUSCOPAN [Concomitant]
     Route: 048
  11. GAMMA-AMINOBUTYRIC ACID [Concomitant]
     Dosage: UNK, BID
     Route: 048
     Dates: start: 20070601
  12. GLUTAMIC ACID [Concomitant]
     Dosage: UNK, BID
     Route: 048
     Dates: start: 20070601
  13. CALCIUM PHOSPHATE [Concomitant]
     Dosage: UNK, BID
     Route: 048
     Dates: start: 20070601
  14. VITAMIN B [Concomitant]
     Dosage: UNK, BID
     Route: 048
     Dates: start: 20070601
  15. PERIDIAL [Concomitant]
     Dosage: 10 MG, BID
     Route: 048
  16. PROFOL [Concomitant]
     Dosage: 200 MG, BID
     Route: 048
  17. FLUIMUCIL [Concomitant]
     Dosage: 600 MG, PRN
     Route: 048
  18. SILINAR [Concomitant]
     Dosage: UNK, PRN
     Route: 048

REACTIONS (8)
  - BLOOD UREA INCREASED [None]
  - CARDIOVASCULAR INSUFFICIENCY [None]
  - DEMENTIA ALZHEIMER'S TYPE [None]
  - DRY MOUTH [None]
  - EATING DISORDER [None]
  - PNEUMONIA [None]
  - SINUSITIS [None]
  - TONGUE DISORDER [None]
